FAERS Safety Report 5883189-7 (Version None)
Quarter: 2008Q3

REPORT INFORMATION
  Report Type: 
  Country: None (occurrence: None)
  Receive Date: 20080915
  Receipt Date: 20080904
  Transmission Date: 20090109
  Serious: Yes (Hospitalization)
  Sender: FDA-Public Use
  Company Number: PHHO2008CA04031

PATIENT
  Sex: Male
  Weight: 70 kg

DRUGS (4)
  1. ICL670A ICL+DISTAB [Suspect]
     Indication: HAEMOSIDEROSIS
     Dosage: 1375 MG, QD
     Route: 048
     Dates: start: 20030601, end: 20080402
  2. ASAPHEN [Concomitant]
     Indication: PROPHYLAXIS
     Dates: start: 20021205
  3. OMEPRAZOLE [Concomitant]
     Dates: start: 20030709
  4. FOLIC ACID [Concomitant]
     Indication: PROPHYLAXIS
     Dates: start: 19800101

REACTIONS (5)
  - ABDOMINAL PAIN UPPER [None]
  - BILIARY COLIC [None]
  - CHOLELITHIASIS [None]
  - HAEMOGLOBIN DECREASED [None]
  - MELAENA [None]
